FAERS Safety Report 7629564-1 (Version None)
Quarter: 2011Q3

REPORT INFORMATION
  Report Type: 
  Country: None (occurrence: None)
  Receive Date: 20110714
  Receipt Date: 20110706
  Transmission Date: 20111222
  Serious: Yes (Hospitalization, Other)
  Sender: FDA-Public Use
  Company Number: 2011SP000364

PATIENT
  Age: 34 Year
  Sex: Female
  Weight: 115.2136 kg

DRUGS (8)
  1. NUVARING [Suspect]
     Indication: HORMONE REPLACEMENT THERAPY
     Dosage: QM
     Dates: start: 20081217, end: 20090111
  2. SYNTHROID [Concomitant]
  3. CELEXA [Concomitant]
  4. PRILOSEC [Concomitant]
  5. CYTOMEL [Concomitant]
  6. WOMEN'S MULTIVITAMIN (MULTIVITAMIN) [Concomitant]
  7. VIVELLE-DOT [Concomitant]
  8. WELLBUTRIN XL [Concomitant]

REACTIONS (17)
  - DEPRESSION [None]
  - ANXIETY [None]
  - HYPOAESTHESIA [None]
  - PULMONARY EMBOLISM [None]
  - THROMBOSIS [None]
  - LIBIDO DECREASED [None]
  - DEEP VEIN THROMBOSIS [None]
  - HEART RATE IRREGULAR [None]
  - TACHYCARDIA [None]
  - H1N1 INFLUENZA [None]
  - DIZZINESS [None]
  - NAUSEA [None]
  - MIGRAINE [None]
  - HEPATIC STEATOSIS [None]
  - FACTOR II MUTATION [None]
  - INJURY [None]
  - ABSCESS ORAL [None]
